FAERS Safety Report 22165061 (Version 1)
Quarter: 2023Q2

REPORT INFORMATION
  Report Type: Spontaneous
  Country: US (occurrence: US)
  Receive Date: 20230403
  Receipt Date: 20230403
  Transmission Date: 20230722
  Serious: No
  Sender: FDA-Public Use
  Company Number: US-UNITED THERAPEUTICS-UNT-2023-006642

PATIENT
  Age: 76 Year
  Sex: Female
  Weight: 71.202 kg

DRUGS (3)
  1. REMODULIN [Suspect]
     Active Substance: TREPROSTINIL
     Indication: Pulmonary arterial hypertension
     Dosage: 0.040 ?G/KG (PHARMACY FILLED REMUNITY; PRE-FILLED WITH 2.2 ML PER CASSETTE; AT A PUMP RATE OF 21 MCL
     Route: 058
  2. REMODULIN [Suspect]
     Active Substance: TREPROSTINIL
     Dosage: UNK, CONTINUING
     Route: 058
     Dates: start: 20221003
  3. TADALAFIL [Concomitant]
     Active Substance: TADALAFIL
     Indication: Product used for unknown indication
     Dosage: UNK
     Route: 065

REACTIONS (5)
  - Infusion site erythema [Unknown]
  - Infusion site pain [Unknown]
  - Infusion site irritation [Unknown]
  - Device adhesion issue [Unknown]
  - Device failure [Unknown]

NARRATIVE: CASE EVENT DATE: 20230301
